FAERS Safety Report 8145795-9 (Version None)
Quarter: 2012Q1

REPORT INFORMATION
  Report Type: 
  Country: None (occurrence: None)
  Receive Date: 20120217
  Receipt Date: 20110218
  Transmission Date: 20120608
  Serious: No
  Sender: FDA-Public Use
  Company Number: US-ABBOTT-11P-163-0706006-00

PATIENT
  Sex: Female

DRUGS (4)
  1. THYROID MEDICINE [Concomitant]
     Indication: PRODUCT USED FOR UNKNOWN INDICATION
     Route: 048
  2. ASPIRIN [Concomitant]
     Indication: PRODUCT USED FOR UNKNOWN INDICATION
     Route: 048
  3. SIMCOR [Suspect]
     Indication: BLOOD TRIGLYCERIDES INCREASED
     Dosage: 1000/20MG AT 10AM
     Route: 048
     Dates: start: 20100201
  4. BLOOD PRESSURE MEDICATIONS [Concomitant]
     Indication: PRODUCT USED FOR UNKNOWN INDICATION
     Route: 048

REACTIONS (6)
  - PRURITUS [None]
  - ERYTHEMA [None]
  - FLUSHING [None]
  - PARAESTHESIA [None]
  - INSOMNIA [None]
  - AGITATION [None]
